FAERS Safety Report 8499922-4 (Version None)
Quarter: 2012Q3

REPORT INFORMATION
  Report Type: 
  Country: None (occurrence: None)
  Receive Date: 20120710
  Receipt Date: 20120709
  Transmission Date: 20120928
  Serious: Yes (Death, Hospitalization)
  Sender: FDA-Public Use
  Company Number: PHHY2012AU057054

PATIENT
  Sex: Male

DRUGS (1)
  1. CLOZARIL [Suspect]
     Dosage: 150 MG, UNK
     Dates: start: 20100323, end: 20120701

REACTIONS (10)
  - FUNGAL INFECTION [None]
  - MALAISE [None]
  - DEATH [None]
  - METASTASES TO BONE MARROW [None]
  - JAUNDICE [None]
  - PRURITUS [None]
  - HEPATITIS [None]
  - METASTATIC NEOPLASM [None]
  - PANCYTOPENIA [None]
  - LUNG INFECTION [None]
